FAERS Safety Report 6117889-0 (Version None)
Quarter: 2009Q1

REPORT INFORMATION
  Report Type: 
  Country: None (occurrence: None)
  Receive Date: 20090314
  Receipt Date: 20090202
  Transmission Date: 20090719
  Serious: Yes (Hospitalization)
  Sender: FDA-Public Use
  Company Number: US-ABBOTT-09P-163-0501190-00

PATIENT
  Sex: Female

DRUGS (4)
  1. HUMIRA [Suspect]
     Indication: RHEUMATOID ARTHRITIS
     Route: 048
     Dates: start: 20080701, end: 20081201
  2. AMBIEN CR [Concomitant]
     Indication: INSOMNIA
     Route: 048
  3. LYRICA [Concomitant]
     Indication: NEURALGIA
     Route: 048
  4. CHANTIX [Concomitant]
     Indication: EX-TOBACCO USER
     Route: 048
     Dates: start: 20090119

REACTIONS (3)
  - ERYTHEMA [None]
  - IMPAIRED HEALING [None]
  - UPPER RESPIRATORY TRACT INFECTION [None]
